FAERS Safety Report 6731889-9 (Version None)
Quarter: 2010Q2

REPORT INFORMATION
  Report Type: 
  Country: None (occurrence: None)
  Receive Date: 20100514
  Receipt Date: 20100426
  Transmission Date: 20101027
  Serious: Yes (Other)
  Sender: FDA-Public Use
  Company Number: US-1180746

PATIENT
  Sex: Female

DRUGS (1)
  1. BSS [Suspect]
     Dosage: INTRAOCULAR
     Route: 031

REACTIONS (3)
  - ANTERIOR CHAMBER INFLAMMATION [None]
  - EYE PAIN [None]
  - OCULAR HYPERAEMIA [None]
